FAERS Safety Report 21498374 (Version 1)
Quarter: 2022Q4

REPORT INFORMATION
  Report Type: Spontaneous
  Country: GB (occurrence: GB)
  Receive Date: 20221024
  Receipt Date: 20221024
  Transmission Date: 20230113
  Serious: Yes (Other)
  Sender: FDA-Public Use
  Company Number: GB-MYLANLABS-2022M1079161

PATIENT
  Age: 39 Year
  Sex: Male

DRUGS (21)
  1. CLOZARIL [Suspect]
     Active Substance: CLOZAPINE
     Indication: Product used for unknown indication
     Dosage: 400 MILLIGRAM, AT TEATIME
     Route: 048
     Dates: start: 20220607
  2. ATORVASTATIN [Concomitant]
     Active Substance: ATORVASTATIN
     Dosage: 40 MILLIGRAM, PM (40 MG ORAL AT NIGHT)
     Route: 048
     Dates: start: 20190704
  3. DIAZEPAM [Concomitant]
     Active Substance: DIAZEPAM
     Dosage: 5 MILLIGRAM, PM (5 MG ORAL ONCE A DAY AT NIGHT )
     Route: 048
     Dates: start: 20220617
  4. DIAZEPAM [Concomitant]
     Active Substance: DIAZEPAM
     Dosage: 5 - 10 MG ORAL WHEN REQUIRED UP TO EVERY 6 HOURS, MAXIMUM 20MG IN 24 HOURS
     Route: 048
     Dates: start: 20220623
  5. FOLIC ACID\IRON\MINERALS\VITAMINS [Concomitant]
     Active Substance: FOLIC ACID\IRON\MINERALS\VITAMINS
     Dosage: 1 DOSAGE FORM, QD (1 CAPSULE ORAL ONCE A DAY)
     Route: 048
     Dates: start: 20220315
  6. HYDROCORTISONE [Concomitant]
     Active Substance: HYDROCORTISONE
     Dosage: BID (APPLY THINLY TO THE AFFECTED AREA TOPICALLY TWICE A DAY)
     Route: 061
     Dates: start: 20220319
  7. OMEPRAZOLE [Concomitant]
     Active Substance: OMEPRAZOLE
     Dosage: 40 MILLIGRAM, AM (40 MG ORAL IN THE MORNING)
     Route: 048
     Dates: start: 20220524
  8. PROCYCLIDINE HYDROCHLORIDE [Concomitant]
     Active Substance: PROCYCLIDINE HYDROCHLORIDE
     Dosage: 10 MILLIGRAM, BID (10 MG ORAL TWICE A DAY)
     Route: 048
     Dates: start: 20220211
  9. VALPROATE SODIUM [Concomitant]
     Active Substance: VALPROATE SODIUM
     Dosage: 1400 MILLIGRAM, BID (1400 MG ORAL AT LUNCH AND NIGHT)
     Route: 048
     Dates: start: 20220211
  10. ZUCLOPENTHIXOL DECANOATE [Concomitant]
     Active Substance: ZUCLOPENTHIXOL DECANOATE
     Dosage: 400 MILLIGRAM, Q2W (400 MG INTRAMUSCULAR EVERY 2 WEEKS)
     Route: 030
     Dates: start: 20220704
  11. CETIRIZINE HYDROCHLORIDE [Concomitant]
     Active Substance: CETIRIZINE HYDROCHLORIDE
     Indication: Seasonal allergy
     Dosage: 10 MG ORAL WHEN REQUIRED MAXIMUM 10MG IN 24 HOURS FOR HAY FEVER
     Route: 048
     Dates: start: 20211230
  12. CARBOHYDRATES\FATTY ACIDS\MINERALS\PROTEIN\VITAMINS [Concomitant]
     Active Substance: CARBOHYDRATES\FATTY ACIDS\MINERALS\PROTEIN\VITAMINS
     Dosage: SIP THE CONTENTS OF ONE BOTTLE ORAL WHEN REQUIRED UP TO EVERY 4 HOURS MAXIMUM 3 DAY
     Route: 048
     Dates: start: 20220311
  13. GAVISCON ADVANCE ANISEED [Concomitant]
     Dosage: 10 - 20 ML ORAL WHEN REQUIRED UP TO EVERY 4 HOURS, MAXIMUM 50ML
     Route: 048
     Dates: start: 20220612
  14. IBUPROFEN [Concomitant]
     Active Substance: IBUPROFEN
     Dosage: 200 - 400 MG ORAL WHEN REQUIRED UP TO EVERY 6 HOURS, MAXIMUM 1,200MG IN 24 HOURS
     Route: 048
     Dates: start: 20211014
  15. POLYETHYLENE GLYCOL 3350\POTASSIUM CHLORIDE\SODIUM BICARBONATE\SODIUM [Concomitant]
     Active Substance: POLYETHYLENE GLYCOL 3350\POTASSIUM CHLORIDE\SODIUM BICARBONATE\SODIUM CHLORIDE
     Dosage: 1 - 6 SACHETS ORAL WHEN REQUIRED MIX 4 SACHETS IN 500ML WATER PER SACHET, DRINK OVER 2-4 HR
     Route: 048
     Dates: start: 20200506
  16. NICOTINE [Concomitant]
     Active Substance: NICOTINE
     Dosage: 2 MG ORAL WHEN REQUIRED UP TO EVERY 1 HOUR, MAXIMUM 30MG IN 24 HOURS
     Route: 048
     Dates: start: 20220311
  17. ACETAMINOPHEN [Concomitant]
     Active Substance: ACETAMINOPHEN
     Indication: Pain
     Dosage: 1000 MG ORAL WHEN REQUIRED UP TO EVERY 4 HOURS, MAXIMUM 4000MG IN 24 HOURS MAXIMUM 4 DOSES
     Route: 048
     Dates: start: 20190704
  18. PROCYCLIDINE HYDROCHLORIDE [Concomitant]
     Active Substance: PROCYCLIDINE HYDROCHLORIDE
     Dosage: 5 MG ORAL WHEN REQUIRED UP TO EVERY 6 HOURS, MAXIMUM 10MG IN 24 HOURS
     Route: 048
     Dates: start: 20220211
  19. PROMETHAZINE HYDROCHLORIDE [Concomitant]
     Active Substance: PROMETHAZINE HYDROCHLORIDE
     Dosage: 25 - 50 MG INTRAMUSCULAR WHEN REQUIRED UP TO EVERY 8 HOURS, MAXIMUM 50MG IN 24 HOURS TOTAL
     Route: 030
     Dates: start: 20211016
  20. PROMETHAZINE HYDROCHLORIDE [Concomitant]
     Active Substance: PROMETHAZINE HYDROCHLORIDE
     Dosage: 25 - 50 MG ORAL WHEN REQUIRED UP TO EVERY 8 HOURS, MAXIMUM 100MG IN 24 HOURS TOTAL
     Route: 048
     Dates: start: 20211016
  21. Strepsils [Concomitant]
     Indication: Oropharyngeal pain
     Dosage: 1 LOZENGE ORAL WHEN REQUIRED UP TO EVERY 2 HOURS, MAXIMUM 12LOZENGE IN 24 HOURS
     Route: 048
     Dates: start: 20210716

REACTIONS (2)
  - COVID-19 [Unknown]
  - Thrombocytopenia [Recovered/Resolved]

NARRATIVE: CASE EVENT DATE: 20220715
